FAERS Safety Report 13222010 (Version 3)
Quarter: 2017Q1

REPORT INFORMATION
  Report Type: Report from Study
  Country: None (occurrence: CZ)
  Receive Date: 20170211
  Receipt Date: 20170328
  Transmission Date: 20170428
  Serious: Yes (Hospitalization)
  Sender: FDA-Public Use
  Company Number: CZ-ABBVIE-17K-217-1865638-00

PATIENT
  Age: 48 Year
  Sex: Female
  Weight: 91 kg

DRUGS (3)
  1. HUMIRA [Suspect]
     Active Substance: ADALIMUMAB
     Indication: ANKYLOSING SPONDYLITIS
     Route: 058
     Dates: start: 20070827, end: 20161210
  2. HUMIRA [Suspect]
     Active Substance: ADALIMUMAB
     Route: 058
     Dates: start: 20170116
  3. UNO [Concomitant]
     Indication: ANKYLOSING SPONDYLITIS
     Dates: start: 20160127

REACTIONS (4)
  - Dyspareunia [Unknown]
  - Uterine leiomyoma [Recovered/Resolved]
  - Adenomyosis [Unknown]
  - Endometriosis [Recovered/Resolved]

NARRATIVE: CASE EVENT DATE: 20161211
